FAERS Safety Report 8511350-1 (Version None)
Quarter: 2012Q3

REPORT INFORMATION
  Report Type: 
  Country: None (occurrence: None)
  Receive Date: 20120716
  Receipt Date: 20120706
  Transmission Date: 20120928
  Serious: Yes (Other)
  Sender: FDA-Public Use
  Company Number: JP-ASTELLAS-2012JP006271

PATIENT
  Age: 73 Year
  Sex: Female

DRUGS (4)
  1. PROGRAF [Suspect]
     Indication: RHEUMATOID ARTHRITIS
     Dosage: 1 MG, UNKNOWN/D
     Route: 048
     Dates: end: 20120701
  2. PROGRAF [Suspect]
     Dosage: 3 MG, UNKNOWN/D
     Route: 048
     Dates: start: 20110801
  3. AGENTS FOR OPHTHALMIC USE [Concomitant]
     Indication: INTRAOCULAR PRESSURE TEST ABNORMAL
     Route: 047
  4. METHYLPREDNISOLONE [Concomitant]
     Dosage: 4 MG, UNKNOWN/D
     Route: 065

REACTIONS (2)
  - INTENTIONAL DRUG MISUSE [None]
  - VISUAL IMPAIRMENT [None]
